FAERS Safety Report 5837170-4 (Version None)
Quarter: 2008Q3

REPORT INFORMATION
  Report Type: 
  Country: None (occurrence: None)
  Receive Date: 20080807
  Receipt Date: 20080729
  Transmission Date: 20090109
  Serious: Yes (Death)
  Sender: FDA-Public Use
  Company Number: KR-ROCHE-578248

PATIENT
  Sex: Male
  Weight: 62 kg

DRUGS (3)
  1. CAPECITABINE [Suspect]
     Indication: GASTRIC CANCER
     Dosage: FREQUENCY -  BID D1-14 Q3W, DOSAGE FORM : INFUSION
     Route: 048
     Dates: start: 20080711
  2. BEVACIZUMAB [Suspect]
     Indication: GASTRIC CANCER
     Dosage: DOSAGE FORM : INFUSION
     Route: 042
     Dates: start: 20080711
  3. CISPLATIN [Suspect]
     Indication: GASTRIC CANCER
     Dosage: DOSAGE FORM : INFUSION
     Route: 042
     Dates: start: 20080711

REACTIONS (1)
  - METABOLIC ACIDOSIS [None]
